FAERS Safety Report 17404341 (Version 2)
Quarter: 2020Q2

REPORT INFORMATION
  Report Type: Spontaneous
  Country: BR (occurrence: BR)
  Receive Date: 20200211
  Receipt Date: 20200403
  Transmission Date: 20200713
  Serious: Yes (Hospitalization, Other)
  Sender: FDA-Public Use
  Company Number: BR-ALEXION PHARMACEUTICALS INC-A202001720

PATIENT
  Sex: Male

DRUGS (2)
  1. SOLIRIS [Suspect]
     Active Substance: ECULIZUMAB
     Dosage: 1200 MG, EVERY 15 DAYS
     Route: 065
  2. SOLIRIS [Suspect]
     Active Substance: ECULIZUMAB
     Indication: PAROXYSMAL NOCTURNAL HAEMOGLOBINURIA
     Dosage: UNK
     Route: 065
     Dates: start: 20100730

REACTIONS (13)
  - Haemolytic anaemia [Not Recovered/Not Resolved]
  - Thrombocytopenia [Unknown]
  - Abdominal pain [Unknown]
  - Porphyria acute [Unknown]
  - Haemoglobin decreased [Unknown]
  - Haptoglobin decreased [Unknown]
  - Sinusitis [Unknown]
  - Hepatic function abnormal [Not Recovered/Not Resolved]
  - Nausea [Unknown]
  - Blood bilirubin unconjugated increased [Unknown]
  - Blood lactate dehydrogenase increased [Unknown]
  - Jaundice [Not Recovered/Not Resolved]
  - Vomiting [Unknown]

NARRATIVE: CASE EVENT DATE: 20130927
